FAERS Safety Report 6076219-3 (Version None)
Quarter: 2009Q1

REPORT INFORMATION
  Report Type: 
  Country: None (occurrence: None)
  Receive Date: 20090212
  Receipt Date: 20090205
  Transmission Date: 20090719
  Serious: Yes (Other)
  Sender: FDA-Public Use
  Company Number: US-JNJCH-2009003365

PATIENT
  Age: 62 Year
  Sex: Male
  Weight: 106.6 kg

DRUGS (2)
  1. SUDAFED PE SINUS AND ALLERGY [Suspect]
     Indication: HYPERSENSITIVITY
     Dosage: TEXT:2 TABLETS
     Route: 048
  2. OMEPRAZOLE [Concomitant]
     Indication: GASTROOESOPHAGEAL REFLUX DISEASE
     Route: 048

REACTIONS (4)
  - DYSPHAGIA [None]
  - FEELING JITTERY [None]
  - NERVOUSNESS [None]
  - THROAT TIGHTNESS [None]
